FAERS Safety Report 15128555 (Version 2)
Quarter: 2018Q4

REPORT INFORMATION
  Report Type: Spontaneous
  Country: IN (occurrence: IN)
  Receive Date: 20180711
  Receipt Date: 20181213
  Transmission Date: 20190204
  Serious: Yes (Hospitalization)
  Sender: FDA-Public Use
  Company Number: IN-SUN PHARMACEUTICAL INDUSTRIES LTD-2018R1-177711

PATIENT
  Age: 26 Year
  Sex: Female

DRUGS (2)
  1. CARBOPLATIN. [Suspect]
     Active Substance: CARBOPLATIN
     Indication: OVARIAN EPITHELIAL CANCER
     Dosage: 450 MILLIGRAM(3 WEEKLY INTERVAL)
     Route: 042
  2. PACLITAXEL. [Suspect]
     Active Substance: PACLITAXEL
     Indication: OVARIAN EPITHELIAL CANCER
     Dosage: UNK
     Route: 065

REACTIONS (6)
  - Exposure during pregnancy [Recovered/Resolved]
  - Ascites [Recovered/Resolved]
  - Respiratory distress [Recovered/Resolved]
  - Premature delivery [Recovered/Resolved]
  - Oligohydramnios [Recovered/Resolved]
  - Liver function test abnormal [Recovered/Resolved]
